FAERS Safety Report 5132775-0 (Version None)
Quarter: 2006Q4

REPORT INFORMATION
  Report Type: 
  Country: None (occurrence: None)
  Receive Date: 20061023
  Receipt Date: 20060801
  Transmission Date: 20070319
  Serious: Yes (Death)
  Sender: FDA-Public Use
  Company Number: JP-BRISTOL-MYERS SQUIBB COMPANY-13498233

PATIENT
  Age: 27 Year
  Sex: Male

DRUGS (6)
  1. ABILIFY [Suspect]
     Indication: HALLUCINATION
     Dosage: 12MG 13-JUL-2006 TO 25-JUL-2006; 6MG 26-JUL-2006 TO 20-SEP-2006
     Route: 048
     Dates: start: 20060706, end: 20060920
  2. ABILIFY [Suspect]
     Indication: DELUSION
     Dosage: 12MG 13-JUL-2006 TO 25-JUL-2006; 6MG 26-JUL-2006 TO 20-SEP-2006
     Route: 048
     Dates: start: 20060706, end: 20060920
  3. BIPERIDEN HYDROCHLORIDE TAB [Suspect]
     Indication: AKATHISIA
     Route: 048
     Dates: start: 20060727, end: 20060920
  4. NITRAZEPAM [Concomitant]
     Indication: INSOMNIA
     Route: 048
     Dates: start: 20060706, end: 20060920
  5. ZOPICLONE [Concomitant]
     Indication: INSOMNIA
     Route: 048
     Dates: start: 20060720, end: 20060920
  6. ETHYL LOFLAZEPATE [Concomitant]
     Indication: TENSION
     Dosage: 2 MG UNKNOWN TO 07-SEP-2006; 1 MG 08-SEP-2006 NOT CONTINUTING
     Route: 048
     Dates: start: 20060713, end: 20060920

REACTIONS (3)
  - AKATHISIA [None]
  - CARDIO-RESPIRATORY ARREST [None]
  - COMPLETED SUICIDE [None]
